FAERS Safety Report 5872976-7 (Version None)
Quarter: 2008Q3

REPORT INFORMATION
  Report Type: 
  Country: None (occurrence: None)
  Receive Date: 20080905
  Receipt Date: 20080827
  Transmission Date: 20090109
  Serious: Yes (Life-Threatening, Disabling)
  Sender: FDA-Public Use
  Company Number: DK-PFIZER INC-2008071918

PATIENT
  Sex: Female

DRUGS (2)
  1. GENOTROPIN [Suspect]
     Indication: TURNER'S SYNDROME
     Dates: start: 20010109, end: 20040924
  2. TRISEKVENS [Concomitant]

REACTIONS (1)
  - CONGESTIVE CARDIOMYOPATHY [None]
